FAERS Safety Report 6753327-2 (Version None)
Quarter: 2010Q2

REPORT INFORMATION
  Report Type: 
  Country: None (occurrence: None)
  Receive Date: 20100520
  Receipt Date: 20100429
  Transmission Date: 20101027
  Serious: Yes (Other)
  Sender: FDA-Public Use
  Company Number: 2009207001

PATIENT
  Age: 63 Year
  Sex: Female
  Weight: 57 kg

DRUGS (7)
  1. PROVERA [Suspect]
     Indication: HORMONE REPLACEMENT THERAPY
     Dosage: UNK, ORAL
     Route: 048
     Dates: start: 19950731, end: 20000901
  2. ESTRADIOL [Suspect]
     Dosage: UNK
     Dates: start: 19950731, end: 20000901
  3. ESTRACE [Concomitant]
  4. PREMARIN [Concomitant]
  5. CYCRIN [Concomitant]
  6. MEDROXYPROGESTERONE ACETATE [Concomitant]
  7. MEDROXYPROGESTERONE [Concomitant]

REACTIONS (1)
  - BREAST CANCER [None]
